FAERS Safety Report 19997499 (Version 1)
Quarter: 2021Q4

REPORT INFORMATION
  Report Type: Spontaneous
  Country: IT (occurrence: IT)
  Receive Date: 20211026
  Receipt Date: 20211026
  Transmission Date: 20220303
  Serious: Yes (Other)
  Sender: FDA-Public Use
  Company Number: IT-ACCORD-005751

PATIENT
  Age: 11 Year
  Sex: Male

DRUGS (6)
  1. ETOPOSIDE [Suspect]
     Active Substance: ETOPOSIDE
     Indication: Medulloblastoma
     Dosage: IN MOBILISING CYCLE ON DAYS 2, 3 AND 4?150 MG/M2 4 CYCLE
  2. METHOTREXATE [Suspect]
     Active Substance: METHOTREXATE
     Indication: Medulloblastoma
     Dosage: 8 G/M2 AT EVERY CYCLE, INTRATHECAL METHOTREXATE WAS ADMINISTERED
     Route: 042
  3. CARBOPLATIN [Suspect]
     Active Substance: CARBOPLATIN
     Indication: Medulloblastoma
     Dosage: ON DAY 8, RECEIVED 4 CYCLES OF PRE-IRRADIATION CHEMOTHERAPY
  4. VINCRISTINE [Suspect]
     Active Substance: VINCRISTINE
     Indication: Medulloblastoma
     Dosage: 1.5 G/M2 ON DAY 8, RECEIVED 4 CYCLES OF PRE-IRRADIATION CHEMOTHERAPY
  5. CYCLOPHOSPHAMIDE [Suspect]
     Active Substance: CYCLOPHOSPHAMIDE
     Indication: Medulloblastoma
     Dosage: 4 G/M2 CYCLOPHOSPHAMIDE IN MOBILISING CYCLE ON 4 G/M2 DAY 1
  6. THIOTEPA [Concomitant]
     Active Substance: THIOTEPA
     Indication: Medulloblastoma
     Dosage: THIOTEPA ON DAYS 5, 4 AND 3

REACTIONS (7)
  - Febrile neutropenia [Recovered/Resolved]
  - Pain in extremity [Recovering/Resolving]
  - Trismus [Recovering/Resolving]
  - Oropharyngeal pain [Recovering/Resolving]
  - Abdominal pain [Recovering/Resolving]
  - Agitation [Recovered/Resolved]
  - Off label use [Unknown]
